FAERS Safety Report 5121121-4 (Version None)
Quarter: 2006Q4

REPORT INFORMATION
  Report Type: 
  Country: None (occurrence: None)
  Receive Date: 20061005
  Receipt Date: 20060927
  Transmission Date: 20070319
  Serious: Yes (Other)
  Sender: FDA-Public Use
  Company Number: US-JNJFOC-20061000406

PATIENT
  Sex: Male
  Weight: 116 kg

DRUGS (7)
  1. REOPRO [Suspect]
     Indication: DRUG USE FOR UNKNOWN INDICATION
  2. HEPARIN [Concomitant]
  3. ALLOPURINOL [Concomitant]
  4. SULPIRIDE [Concomitant]
  5. MIANSERIN HYDROCHLORIDE [Concomitant]
  6. NIFEDIPINE [Concomitant]
  7. LORMETAZEPAM [Concomitant]

REACTIONS (1)
  - CORONARY ARTERY DISSECTION [None]
